FAERS Safety Report 21384107 (Version 1)
Quarter: 2022Q3

REPORT INFORMATION
  Report Type: Spontaneous
  Country: US (occurrence: US)
  Receive Date: 20220928
  Receipt Date: 20220928
  Transmission Date: 20221027
  Serious: Yes (Other)
  Sender: FDA-Public Use
  Company Number: US-VELOXIS PHARMACEUTICALS-2022VELUS-000681

PATIENT
  Age: 65 Year
  Sex: Female

DRUGS (1)
  1. TACROLIMUS [Suspect]
     Active Substance: TACROLIMUS
     Indication: Prophylaxis against transplant rejection
     Dosage: UNK

REACTIONS (5)
  - Dermatitis atopic [Recovering/Resolving]
  - Dermatitis contact [Recovering/Resolving]
  - Dermatitis [Recovering/Resolving]
  - Dermatitis [Recovering/Resolving]
  - Prophylaxis against transplant rejection [Unknown]
